FAERS Safety Report 6941888-X (Version None)
Quarter: 2010Q3

REPORT INFORMATION
  Report Type: 
  Country: None (occurrence: None)
  Receive Date: 20100826
  Receipt Date: 20100819
  Transmission Date: 20110219
  Serious: No
  Sender: FDA-Public Use
  Company Number: US-PFIZER INC-2010099510

PATIENT
  Sex: Female

DRUGS (3)
  1. AMLODIPINE BESYLATE [Suspect]
     Dosage: UNK MG, UNK
  2. SIMVASTATIN [Suspect]
     Indication: BLOOD CHOLESTEROL INCREASED
     Dosage: 20 MG,DAILY
     Dates: start: 20100201, end: 20100101
  3. CADUET [Concomitant]
     Dosage: UNK
     Route: 048

REACTIONS (2)
  - DRUG INEFFECTIVE [None]
  - HYPERTENSION [None]
